FAERS Safety Report 11843154 (Version 3)
Quarter: 2016Q1

REPORT INFORMATION
  Report Type: Spontaneous
  Country: JP (occurrence: JP)
  Receive Date: 20151216
  Receipt Date: 20160209
  Transmission Date: 20160526
  Serious: Yes (Hospitalization, Other)
  Sender: FDA-Public Use
  Company Number: JP-009507513-1512JPN006744

PATIENT
  Age: 60 Year
  Sex: Female
  Weight: 65.5 kg

DRUGS (8)
  1. LOXONIN [Concomitant]
     Active Substance: LOXOPROFEN SODIUM
     Dosage: TOTAL DAILY DOSE 3(DOSAGE FORM), DIVIDED DOSE FREQUENCY UNKNOWN
     Route: 048
     Dates: end: 20151112
  2. BROTIZOLAM [Concomitant]
     Active Substance: BROTIZOLAM
     Dosage: TOTAL DAILY DOSE 1(DOSAGE FORM), DIVIDED DOSE FREQUENCY UNKNOWN
     Route: 048
     Dates: end: 20151112
  3. SOVALDI [Suspect]
     Active Substance: SOFOSBUVIR
     Dosage: TOTAL DAILY DOSE 1(DOSAGE FORM), DIVIDED DOSE FREQUENCY UNKNOWN
     Route: 048
     Dates: start: 20151105, end: 20151112
  4. ALINAMIN F (FURSULTIAMINE HYDROCHLORIDE (+) RIBOFLAVIN) [Concomitant]
     Dosage: TOTAL DAILY DOSE 3(DOSAGE FORM), DIVIDED DOSE FREQUENCY UNKNOWN
     Route: 048
     Dates: end: 20151112
  5. GASTER [Concomitant]
     Active Substance: FAMOTIDINE
     Dosage: TOTAL DAILY DOSE 2(DOSAGE FORM),DIVIDED DOSE FREQUENCY UNKNOWN
     Route: 048
     Dates: end: 20151112
  6. MUCOSTA [Concomitant]
     Active Substance: REBAMIPIDE
     Dosage: TOTAL DAILY DOSE 3(DOSAGE FORM),DIVIDED DOSE FREQUENCY UNKNOWN
     Route: 048
     Dates: end: 20151112
  7. AMINOVACT [Concomitant]
     Dosage: TOTAL DAILY DOSE 3(DOSAGE FORM), DIVIDED DOSE FREQUENCY UNKNOWN
     Route: 048
     Dates: end: 20151112
  8. REBETOL [Suspect]
     Active Substance: RIBAVIRIN
     Dosage: TOTAL DAILY DOSE 3(DOSAGE FORM), DIVIDED DOSE FREQUENCY UNKNOWN
     Route: 048
     Dates: start: 20151105, end: 20151112

REACTIONS (3)
  - Hypokalaemia [Recovered/Resolved]
  - Hypertension [Recovered/Resolved]
  - Tachycardia [Recovered/Resolved]

NARRATIVE: CASE EVENT DATE: 20151112
